FAERS Safety Report 8886675 (Version 3)
Quarter: 2012Q4

REPORT INFORMATION
  Report Type: 
  Country: US (occurrence: US)
  Receive Date: 20121105
  Receipt Date: 20121127
  Transmission Date: 20130627
  Serious: Yes (Other)
  Sender: FDA-Public Use
  Company Number: PHEH2012US021321

PATIENT
  Age: 58 Year
  Sex: Female
  Weight: 205 kg

DRUGS (6)
  1. VIVELLE DOT [Suspect]
     Indication: OESTROGEN REPLACEMENT THERAPY
     Dosage: 0.1 mg, every three day
     Route: 062
     Dates: start: 201203
  2. VIVELLE DOT [Suspect]
     Indication: HORMONE LEVEL ABNORMAL
     Dosage: 0.1 mg, every three day
     Route: 062
  3. PROGESTERONE [Concomitant]
     Indication: HORMONE LEVEL ABNORMAL
     Dosage: 25 mg, UNK
     Route: 060
     Dates: start: 201106
  4. ARMOUR THYROID [Concomitant]
     Indication: HYPOTHYROIDISM
     Dosage: 30 mg, UNK
     Route: 048
     Dates: start: 201106
  5. B 12 [Concomitant]
  6. FISH OIL [Concomitant]

REACTIONS (6)
  - Depression suicidal [Recovered/Resolved]
  - Anxiety [Recovered/Resolved]
  - Feeling abnormal [Recovered/Resolved]
  - Somnolence [Recovered/Resolved]
  - Crying [Recovered/Resolved]
  - Drug ineffective [Unknown]
